FAERS Safety Report 5201870-X (Version None)
Quarter: 2006Q4

REPORT INFORMATION
  Report Type: 
  Country: None (occurrence: None)
  Receive Date: 20061010
  Receipt Date: 20060616
  Transmission Date: 20070319
  Serious: Yes (Hospitalization)
  Sender: FDA-Public Use
  Company Number: 2006-06-1205

PATIENT
  Age: 67 Year
  Sex: Female

DRUGS (3)
  1. TEMODAR [Suspect]
     Dosage: SEE IMAGE
     Route: 048
     Dates: end: 20060301
  2. TEMODAR [Suspect]
     Dosage: SEE IMAGE
     Route: 048
     Dates: start: 20060507, end: 20060511
  3. RADIATION THERAPY [Concomitant]

REACTIONS (4)
  - NEUTROPENIA [None]
  - RED BLOOD CELL COUNT DECREASED [None]
  - THROMBOCYTOPENIA [None]
  - WHITE BLOOD CELL COUNT DECREASED [None]
